FAERS Safety Report 10359933 (Version 2)
Quarter: 2014Q3

REPORT INFORMATION
  Report Type: Spontaneous
  Country: CH (occurrence: None)
  Receive Date: 20140730
  Receipt Date: 20140903
  Transmission Date: 20150326
  Serious: Yes (Disabling)
  Sender: FDA-Public Use
  Company Number: 20140438

PATIENT
  Age: 35 Year
  Sex: Female

DRUGS (1)
  1. FERINJECT [Suspect]
     Active Substance: FERRIC CARBOXYMALTOSE
     Indication: IRON DEFICIENCY ANAEMIA
     Dosage: OVER 30 MINUTES
     Route: 042
     Dates: start: 20140707, end: 20140707

REACTIONS (7)
  - Hypotension [None]
  - Vertigo [None]
  - Pyrexia [None]
  - Back pain [None]
  - Condition aggravated [None]
  - Nausea [None]
  - Tinnitus [None]

NARRATIVE: CASE EVENT DATE: 20140708
